FAERS Safety Report 8908422 (Version 2)
Quarter: 2012Q4

REPORT INFORMATION
  Report Type: 
  Country: US (occurrence: US)
  Receive Date: 20121114
  Receipt Date: 20121220
  Transmission Date: 20130627
  Serious: No
  Sender: FDA-Public Use
  Company Number: US-PFIZER INC-2012282692

PATIENT
  Sex: Female

DRUGS (2)
  1. CISPLATIN [Suspect]
     Dosage: UNK
  2. MANNITOL [Suspect]
     Dosage: UNK

REACTIONS (4)
  - Occupational exposure to product [Unknown]
  - Burns first degree [Unknown]
  - Erythema [Unknown]
  - Dermatitis [Unknown]
